FAERS Safety Report 8361427-9 (Version None)
Quarter: 2012Q2

REPORT INFORMATION
  Report Type: 
  Country: None (occurrence: None)
  Receive Date: 20120515
  Receipt Date: 20110826
  Transmission Date: 20120825
  Serious: No
  Sender: FDA-Public Use
  Company Number: US-ALEXION-A201101317

PATIENT
  Sex: Female
  Weight: 72.27 kg

DRUGS (9)
  1. ARANESP [Concomitant]
     Dosage: UNK, Q2W
  2. PREDNISONE TAB [Concomitant]
     Dosage: 10 MG, QOD
     Route: 048
  3. PRILOSEC [Concomitant]
     Dosage: 20 MG, BID
     Route: 048
  4. BONIVA [Concomitant]
     Dosage: 150 MG, QMONTH
     Dates: start: 20101118
  5. URSODIOL [Concomitant]
     Dosage: 1 TAB, BID
     Route: 048
     Dates: start: 20100819
  6. SOLIRIS [Suspect]
     Indication: PAROXYSMAL NOCTURNAL HAEMOGLOBINURIA
     Dosage: 900 MG, Q2W
     Route: 042
     Dates: start: 20100819
  7. FOLIC ACID [Concomitant]
     Dosage: 2 TABS, QD
  8. CRANBERRY [Concomitant]
     Dosage: 500 MG, TID
     Dates: start: 20110331
  9. CALCIUM + VITAMIN D [Concomitant]
     Dosage: 500 MG/125 MG, TID
     Dates: start: 20110331

REACTIONS (1)
  - HAEMOLYSIS [None]
